FAERS Safety Report 8323039-2 (Version None)
Quarter: 2012Q2

REPORT INFORMATION
  Report Type: 
  Country: None (occurrence: None)
  Receive Date: 20120430
  Receipt Date: 20120428
  Transmission Date: 20120825
  Serious: No
  Sender: FDA-Public Use
  Company Number: US-PFIZER INC-2012105440

PATIENT
  Sex: Female

DRUGS (2)
  1. LUVOX [Suspect]
     Dosage: UNK
  2. ZOLOFT [Suspect]
     Dosage: UNK
     Dates: end: 20120401

REACTIONS (1)
  - COUGH [None]
